FAERS Safety Report 6420989-9 (Version None)
Quarter: 2009Q4

REPORT INFORMATION
  Report Type: 
  Country: None (occurrence: None)
  Receive Date: 20091030
  Receipt Date: 20091020
  Transmission Date: 20100525
  Serious: Yes (Hospitalization)
  Sender: FDA-Public Use
  Company Number: GB-ROCHE-663674

PATIENT
  Age: 44 Year
  Sex: Male

DRUGS (1)
  1. TAMIFLU [Suspect]
     Indication: DRUG USE FOR UNKNOWN INDICATION
     Route: 065
     Dates: start: 20091013, end: 20091018

REACTIONS (4)
  - ARTHRALGIA [None]
  - DECREASED APPETITE [None]
  - HYPERHIDROSIS [None]
  - PURPURA [None]
